FAERS Safety Report 9737231 (Version 3)
Quarter: 2013Q4

REPORT INFORMATION
  Report Type: Spontaneous
  Country: JP (occurrence: JP)
  Receive Date: 20131206
  Receipt Date: 20131223
  Transmission Date: 20140711
  Serious: Yes (Other)
  Sender: FDA-Public Use
  Company Number: JP-TEVA-442083USA

PATIENT
  Age: 66 Year
  Sex: Male

DRUGS (8)
  1. BENDAMUSTINE [Suspect]
     Indication: B-CELL LYMPHOMA
     Dosage: UID/QD
     Route: 042
     Dates: start: 20130626, end: 20130627
  2. BENDAMUSTINE [Suspect]
     Dosage: UID/QD
     Route: 042
     Dates: start: 20130802, end: 20130803
  3. BENDAMUSTINE [Suspect]
     Dosage: UID/QD
     Route: 042
     Dates: start: 20130903, end: 20130904
  4. RITUXIMAB [Concomitant]
     Dates: start: 20130625
  5. RITUXIMAB [Concomitant]
     Dates: start: 20130801
  6. RITUXIMAB [Concomitant]
     Dates: start: 20130902
  7. HYDROCORTISONE [Concomitant]
     Indication: ALLERGY PROPHYLAXIS
     Dates: start: 20130626
  8. PALONOSETRON HYDROCHLORIDE [Concomitant]
     Indication: PROPHYLAXIS OF NAUSEA AND VOMITING
     Dates: start: 20130626

REACTIONS (2)
  - Hypersensitivity [Recovering/Resolving]
  - Hypersensitivity [Recovered/Resolved]
